FAERS Safety Report 7928129-1 (Version None)
Quarter: 2011Q4

REPORT INFORMATION
  Report Type: 
  Country: None (occurrence: None)
  Receive Date: 20111118
  Receipt Date: 20111114
  Transmission Date: 20120403
  Serious: Yes (Hospitalization, Disabling)
  Sender: FDA-Public Use
  Company Number: GB-TEVA-309080ISR

PATIENT
  Age: 65 Year
  Sex: Male
  Weight: 51 kg

DRUGS (8)
  1. ORAMORPH SR [Suspect]
  2. FENTANYL-100 [Suspect]
     Dosage: PATCH CHANGED EVERY 3 DAYS
  3. ORAMORPH SR [Suspect]
  4. ACETAMINOPHEN [Suspect]
  5. LYRICA [Suspect]
     Indication: ABDOMINAL PAIN
     Dates: start: 20080101
  6. LYRICA [Suspect]
  7. TRAMADOL HCL [Suspect]
  8. NALOXONE HCL [Suspect]

REACTIONS (2)
  - CARDIO-RESPIRATORY ARREST [None]
  - ABDOMINAL PAIN [None]
